FAERS Safety Report 15154302 (Version 1)
Quarter: 2018Q3

REPORT INFORMATION
  Report Type: Report from Study
  Country: DE (occurrence: DE)
  Receive Date: 20180717
  Receipt Date: 20180717
  Transmission Date: 20181010
  Serious: Yes (Hospitalization)
  Sender: FDA-Public Use
  Company Number: DE-MYLANLABS-2018M1051077

PATIENT
  Age: 59 Year
  Sex: Male

DRUGS (3)
  1. VALSACOR [Concomitant]
     Active Substance: VALSARTAN
     Indication: PRODUCT USED FOR UNKNOWN INDICATION
     Dosage: 1?0?0
  2. REMICADE [Suspect]
     Active Substance: INFLIXIMAB
     Indication: PSORIASIS
     Dosage: 1?0?0, TREATMENT TO DATE
     Route: 042
     Dates: start: 20110713
  3. METHOTREXATE. [Suspect]
     Active Substance: METHOTREXATE
     Indication: PSORIASIS
     Dosage: 0.20ML; 1?0?0
     Route: 058
     Dates: start: 20130220, end: 20171019

REACTIONS (2)
  - Dizziness [Not Recovered/Not Resolved]
  - Diplopia [Recovered/Resolved]

NARRATIVE: CASE EVENT DATE: 20171018
